FAERS Safety Report 16921622 (Version 1)
Quarter: 2019Q4

REPORT INFORMATION
  Report Type: Spontaneous
  Country: US (occurrence: US)
  Receive Date: 20191015
  Receipt Date: 20191015
  Transmission Date: 20200122
  Serious: No
  Sender: FDA-Public Use
  Company Number: NVSC2019US001347

PATIENT
  Age: 35 Year
  Sex: Male
  Weight: 77.3 kg

DRUGS (6)
  1. TESTOSTERONE. [Concomitant]
     Active Substance: TESTOSTERONE
     Dosage: 100 MG, BIW
     Route: 030
  2. ESTRADIOL. [Suspect]
     Active Substance: ESTRADIOL
     Dosage: 0.025 UNK (TWICE A WEEK)
     Route: 062
  3. TESTOSTERONE. [Concomitant]
     Active Substance: TESTOSTERONE
     Indication: AUTONOMIC NERVOUS SYSTEM IMBALANCE
     Dosage: 50 MG
     Route: 030
  4. TESTOSTERONE CYPIONATE. [Concomitant]
     Active Substance: TESTOSTERONE CYPIONATE
     Indication: AUTONOMIC NERVOUS SYSTEM IMBALANCE
     Dosage: 150 MG, BIW
     Route: 030
  5. ESTRADIOL. [Suspect]
     Active Substance: ESTRADIOL
     Dosage: 0.037 UNK (TWICE A WEEK)
     Route: 062
  6. ESTRADIOL. [Suspect]
     Active Substance: ESTRADIOL
     Indication: AUTONOMIC NERVOUS SYSTEM IMBALANCE
     Dosage: 0.025 MG, QW
     Route: 062

REACTIONS (2)
  - Autonomic nervous system imbalance [Unknown]
  - Product use in unapproved indication [Unknown]
